FAERS Safety Report 25571951 (Version 1)
Quarter: 2025Q3

REPORT INFORMATION
  Report Type: Spontaneous
  Country: US (occurrence: US)
  Receive Date: 20250717
  Receipt Date: 20250717
  Transmission Date: 20251020
  Serious: Yes (Life-Threatening, Hospitalization, Other)
  Sender: LUPIN
  Company Number: US-LUPIN PHARMACEUTICALS INC.-2025-06128

PATIENT
  Age: 65 Year
  Sex: Male

DRUGS (3)
  1. MELOXICAM [Suspect]
     Active Substance: MELOXICAM
     Indication: Arthralgia
     Route: 065
  2. KETOROLAC [Suspect]
     Active Substance: KETOROLAC TROMETHAMINE
     Indication: Arthralgia
     Route: 065
  3. DEXAMETHASONE [Suspect]
     Active Substance: DEXAMETHASONE
     Indication: Arthralgia
     Route: 065

REACTIONS (6)
  - Steroid withdrawal syndrome [Unknown]
  - Adrenocortical insufficiency acute [Unknown]
  - Adrenal insufficiency [Unknown]
  - Hypercalcaemia [Unknown]
  - Acute kidney injury [Unknown]
  - Counterfeit product administered [Unknown]
